FAERS Safety Report 16820105 (Version 2)
Quarter: 2019Q4

REPORT INFORMATION
  Report Type: Report from Study
  Country: None (occurrence: US)
  Receive Date: 20190918
  Receipt Date: 20191008
  Transmission Date: 20200122
  Serious: Yes (Disabling)
  Sender: FDA-Public Use
  Company Number: US-ABBVIE-19K-163-2924886-00

PATIENT
  Sex: Male

DRUGS (1)
  1. HUMIRA [Suspect]
     Active Substance: ADALIMUMAB
     Indication: RHEUMATOID ARTHRITIS
     Route: 058

REACTIONS (7)
  - Nerve injury [Unknown]
  - Upper limb fracture [Unknown]
  - Arthritis [Unknown]
  - Disability [Not Recovered/Not Resolved]
  - Breakthrough pain [Recovered/Resolved]
  - Migraine [Not Recovered/Not Resolved]
  - Adverse event [Unknown]
